FAERS Safety Report 15285517 (Version 1)
Quarter: 2018Q3

REPORT INFORMATION
  Report Type: Spontaneous
  Country: GB (occurrence: GB)
  Receive Date: 20180816
  Receipt Date: 20180816
  Transmission Date: 20181010
  Serious: Yes (Other)
  Sender: FDA-Public Use
  Company Number: GB-009507513-2007-156259-NL

PATIENT
  Age: 24 Year
  Sex: Female
  Weight: 82 kg

DRUGS (2)
  1. IMPLANON [Suspect]
     Active Substance: ETONOGESTREL
     Dosage: CONTINUING: NO
     Dates: start: 20060222, end: 20070321
  2. ANTINEOPLASTIC (UNSPECIFIED) [Concomitant]
     Active Substance: UNSPECIFIED INGREDIENT
     Dosage: ADDITIONAL INFO: USED 7 DOSES.

REACTIONS (3)
  - Pregnancy with implant contraceptive [Recovered/Resolved]
  - Amenorrhoea [Unknown]
  - Cervix carcinoma [Unknown]

NARRATIVE: CASE EVENT DATE: 20060222
